FAERS Safety Report 9980890 (Version 1)
Quarter: 2014Q1

REPORT INFORMATION
  Report Type: Spontaneous
  Country: US (occurrence: None)
  Receive Date: 20140306
  Receipt Date: 20140306
  Transmission Date: 20141002
  Serious: Yes (Other)
  Sender: FDA-Public Use
  Company Number: None

PATIENT
  Age: 6 Year
  Sex: Female
  Weight: 18.14 kg

DRUGS (1)
  1. FOCALIN XR [Suspect]
     Indication: ATTENTION DEFICIT/HYPERACTIVITY DISORDER
     Dosage: 1 PILL (4 HRS APART) TWICE DAILY TAKEN BY MOUTH

REACTIONS (5)
  - No therapeutic response [None]
  - Product quality issue [None]
  - Product substitution issue [None]
  - Attention deficit/hyperactivity disorder [None]
  - Disease progression [None]
